FAERS Safety Report 6617044-1 (Version None)
Quarter: 2010Q1

REPORT INFORMATION
  Report Type: 
  Country: None (occurrence: None)
  Receive Date: 20100306
  Receipt Date: 20100222
  Transmission Date: 20100710
  Serious: Yes (Other)
  Sender: FDA-Public Use
  Company Number: US-JNJFOC-20100200888

PATIENT
  Age: 85 Year
  Sex: Male
  Weight: 67.59 kg

DRUGS (4)
  1. ST. JOSEPH ENTERIC COATED [Suspect]
     Indication: BLOOD CHOLESTEROL INCREASED
     Route: 048
  2. ST. JOSEPH ENTERIC COATED [Suspect]
     Indication: HYPERTENSION
     Route: 048
  3. CRESTOR [Concomitant]
     Indication: BLOOD CHOLESTEROL INCREASED
     Route: 048
  4. TOPROL-XL [Concomitant]
     Indication: HYPERTENSION
     Route: 048

REACTIONS (7)
  - CONFUSIONAL STATE [None]
  - DEPRESSION [None]
  - DIARRHOEA [None]
  - DIZZINESS [None]
  - HEADACHE [None]
  - PRODUCT QUALITY ISSUE [None]
  - VOMITING [None]
